FAERS Safety Report 8161948-8 (Version None)
Quarter: 2012Q1

REPORT INFORMATION
  Report Type: 
  Country: None (occurrence: None)
  Receive Date: 20120224
  Receipt Date: 20120221
  Transmission Date: 20120608
  Serious: Yes (Hospitalization, Other)
  Sender: FDA-Public Use
  Company Number: US-PFIZER INC-2011152605

PATIENT
  Sex: Female

DRUGS (2)
  1. CHANTIX [Suspect]
     Indication: SMOKING CESSATION THERAPY
     Dosage: UNK
     Route: 048
     Dates: start: 20081103, end: 20090101
  2. CHANTIX [Suspect]
     Dosage: STARTER PACK
     Route: 048
     Dates: start: 20100101, end: 20100201

REACTIONS (12)
  - DIZZINESS [None]
  - PAIN [None]
  - INTENTIONAL OVERDOSE [None]
  - DYSPHAGIA [None]
  - NECK PAIN [None]
  - SUICIDE ATTEMPT [None]
  - MEMORY IMPAIRMENT [None]
  - TONGUE NEOPLASM MALIGNANT STAGE UNSPECIFIED [None]
  - TOOTH FRACTURE [None]
  - FATIGUE [None]
  - HEADACHE [None]
  - DYSPHONIA [None]
